FAERS Safety Report 6738089-7 (Version None)
Quarter: 2010Q2

REPORT INFORMATION
  Report Type: 
  Country: None (occurrence: None)
  Receive Date: 20100520
  Receipt Date: 20100512
  Transmission Date: 20101027
  Serious: Yes (Hospitalization)
  Sender: FDA-Public Use
  Company Number: 011985

PATIENT
  Sex: Male
  Weight: 45.3 kg

DRUGS (3)
  1. CERTOLIZUMAB PEGOL (CERTOLIZUMAB PEGOL) [Suspect]
     Indication: CROHN'S DISEASE
     Dosage: 400 MG, 1X/2 WEEKS, SUBCUTANEOUS
     Route: 058
     Dates: start: 20100412
  2. PREDNISONE TAB [Concomitant]
  3. MESALAMINE [Concomitant]

REACTIONS (4)
  - CONDITION AGGRAVATED [None]
  - CROHN'S DISEASE [None]
  - DEHYDRATION [None]
  - VOMITING [None]
